FAERS Safety Report 8489544-3 (Version None)
Quarter: 2012Q3

REPORT INFORMATION
  Report Type: 
  Country: None (occurrence: None)
  Receive Date: 20120705
  Receipt Date: 20120626
  Transmission Date: 20120928
  Serious: Yes (Other)
  Sender: FDA-Public Use
  Company Number: IT-JNJFOC-20120613944

PATIENT
  Age: 48 Year
  Sex: Female

DRUGS (4)
  1. KETOPROFEN [Concomitant]
     Dosage: 0.5 DOSE UNIT
     Route: 048
  2. REMICADE [Suspect]
     Dosage: SECOND INFUSION
     Route: 042
     Dates: start: 20120530
  3. REMICADE [Suspect]
     Indication: PSORIATIC ARTHROPATHY
     Dosage: FIRST INFUSION
     Route: 042
     Dates: start: 20120515
  4. REMICADE [Suspect]
     Dosage: THIRD INFUSION
     Route: 042
     Dates: start: 20120626, end: 20120626

REACTIONS (6)
  - LARYNX IRRITATION [None]
  - THROAT TIGHTNESS [None]
  - INFUSION RELATED REACTION [None]
  - MALAISE [None]
  - ERYTHEMA [None]
  - COUGH [None]
